FAERS Safety Report 23548901 (Version 1)
Quarter: 2024Q1

REPORT INFORMATION
  Report Type: Spontaneous
  Country: GB (occurrence: GB)
  Receive Date: 20240221
  Receipt Date: 20240221
  Transmission Date: 20240409
  Serious: Yes (Life-Threatening, Other)
  Sender: FDA-Public Use
  Company Number: None

PATIENT
  Age: 84 Year
  Sex: Male
  Weight: 79 kg

DRUGS (12)
  1. RAMIPRIL [Suspect]
     Active Substance: RAMIPRIL
     Indication: Product used for unknown indication
     Dosage: 5 MILLIGRAM, QD
     Route: 065
     Dates: start: 20230912
  2. AMLODIPINE [Concomitant]
     Active Substance: AMLODIPINE BESYLATE
     Dosage: 1 DOSAGE FORM, QD  TAKE ONE TABLET EVERY MORNING
     Route: 065
     Dates: start: 20230912
  3. ASPIRIN [Concomitant]
     Active Substance: ASPIRIN
     Dosage: 1 DOSAGE FORM, QD TAKE ONE DAILY
     Route: 065
     Dates: start: 20230912
  4. CHOLECALCIFEROL [Concomitant]
     Active Substance: CHOLECALCIFEROL
     Dosage: 1 DOSAGE FORM, QD  (TAKE ONE CAPSULE EVERY MORNING ) (TAKE ONE CAPSULE EVERY MORNING )
     Route: 065
     Dates: start: 20230912
  5. DOXYCYCLINE [Concomitant]
     Active Substance: DOXYCYCLINE
     Dosage: TWO NOW THEN ONE DAILY*STAND BY COURSE*
     Route: 065
     Dates: start: 20231213, end: 20231220
  6. FLUOXETINE [Concomitant]
     Active Substance: FLUOXETINE HYDROCHLORIDE
     Dosage: 2 DOSAGE FORM, QD (TAKE TWO CAPSULES EVERY MORNING)
     Route: 065
     Dates: start: 20230912
  7. LANSOPRAZOLE [Concomitant]
     Active Substance: LANSOPRAZOLE
     Dosage: 1 DOSAGE FORM; QD; (TAKE ONE ONCE DAILY 30-60MIN BEFORE FOOD)
     Route: 065
     Dates: start: 20230912
  8. POLYETHYLENE GLYCOLS [Concomitant]
     Active Substance: POLYETHYLENE GLYCOLS
     Dosage: 1 DOSAGE FORM; (MIX ONE SACHET IN 125MLS OF WATER AND TAKE EVER)
     Route: 065
     Dates: start: 20230912
  9. MEMANTINE [Concomitant]
     Active Substance: MEMANTINE
     Dosage: 1 DOSAGE FORM, QD (TAKE ONE TABLET EVERY MORNING)
     Route: 065
     Dates: start: 20230912
  10. QUETIAPINE [Concomitant]
     Active Substance: QUETIAPINE
     Dosage: 0.5 DOSAGE FORM (TAKE HALF A TABLET EVERY MORNING AND TEA TIME)
     Route: 065
     Dates: start: 20230912
  11. CROMOLYN SODIUM [Concomitant]
     Active Substance: CROMOLYN SODIUM
     Dosage: 1-2 DROPS 4 TIMES/DAY
     Route: 065
     Dates: start: 20240103, end: 20240110
  12. TRELEGY ELLIPTA [Concomitant]
     Active Substance: FLUTICASONE FUROATE\UMECLIDINIUM BROMIDE\VILANTEROL TRIFENATATE
     Dosage: QD (INHALE ONE METERED DOSE ONCE A DAY)
     Route: 055
     Dates: start: 20230912

REACTIONS (1)
  - Anaphylactic reaction [Recovered/Resolved]
